FAERS Safety Report 20155686 (Version 5)
Quarter: 2025Q4

REPORT INFORMATION
  Report Type: Spontaneous
  Country: EU (occurrence: EU)
  Receive Date: 20211207
  Receipt Date: 20251107
  Transmission Date: 20260117
  Serious: Yes (Other)
  Sender: NOVARTIS
  Company Number: EU-NOVARTISPH-NVSC2021DE275838

PATIENT
  Age: 47 Year
  Sex: Male

DRUGS (46)
  1. CYCLOPHOSPHAMIDE [Suspect]
     Active Substance: CYCLOPHOSPHAMIDE
     Indication: Bone marrow conditioning regimen
     Dosage: 750 MG/M2 (ON D+3 AND D+4)
     Route: 065
  2. CYCLOPHOSPHAMIDE [Suspect]
     Active Substance: CYCLOPHOSPHAMIDE
     Indication: Immunosuppressant drug therapy
     Dosage: 750 MG/M2
     Route: 065
  3. CYCLOPHOSPHAMIDE [Suspect]
     Active Substance: CYCLOPHOSPHAMIDE
     Indication: Diffuse large B-cell lymphoma stage IV
     Dosage: 750 MG/M2
     Route: 065
  4. CYCLOPHOSPHAMIDE [Suspect]
     Active Substance: CYCLOPHOSPHAMIDE
     Indication: Prophylaxis against transplant rejection
     Dosage: 60 MG/KG (ON DAYS -3 AND -2, CONDITIONING REGIME)
     Route: 065
  5. CYCLOPHOSPHAMIDE [Suspect]
     Active Substance: CYCLOPHOSPHAMIDE
     Indication: Immunosuppression
     Dosage: 750 MG/M2
     Route: 065
  6. CYCLOPHOSPHAMIDE [Suspect]
     Active Substance: CYCLOPHOSPHAMIDE
     Indication: Allogenic stem cell transplantation
     Dosage: UNK
     Route: 065
  7. CYCLOPHOSPHAMIDE [Suspect]
     Active Substance: CYCLOPHOSPHAMIDE
     Indication: Diffuse large B-cell lymphoma
     Dosage: UNK
     Route: 065
  8. CYCLOPHOSPHAMIDE [Suspect]
     Active Substance: CYCLOPHOSPHAMIDE
     Dosage: UNK  (ON D+3 AND D+4)
     Route: 065
  9. CYCLOPHOSPHAMIDE [Suspect]
     Active Substance: CYCLOPHOSPHAMIDE
     Dosage: 60 MG/KG (750 MG/M2 ON D+3 AND D+4)
     Route: 065
  10. TACROLIMUS [Suspect]
     Active Substance: TACROLIMUS
     Indication: Immunosuppressant drug therapy
     Dosage: UNK
     Route: 065
  11. TACROLIMUS [Suspect]
     Active Substance: TACROLIMUS
     Indication: Allogenic stem cell transplantation
     Dosage: UNK
     Route: 065
  12. TACROLIMUS [Suspect]
     Active Substance: TACROLIMUS
     Indication: Prophylaxis against transplant rejection
     Dosage: UNK
     Route: 065
  13. MYCOPHENOLATE MOFETIL [Suspect]
     Active Substance: MYCOPHENOLATE MOFETIL
     Indication: Immunosuppressant drug therapy
     Dosage: FROM D PLUS 5, WHICH WAS TAPERED ACCORDING TO INSTITUTIONAL GUIDELINES
     Route: 065
  14. MYCOPHENOLATE MOFETIL [Suspect]
     Active Substance: MYCOPHENOLATE MOFETIL
     Indication: Allogenic stem cell transplantation
     Dosage: UNK
     Route: 065
  15. MYCOPHENOLATE MOFETIL [Suspect]
     Active Substance: MYCOPHENOLATE MOFETIL
     Indication: Prophylaxis against transplant rejection
     Dosage: FROM D+5, WHICH WAS TAPERED ACCORDING TO INSTITUTIONAL GUIDELINES
     Route: 065
  16. MYCOPHENOLATE MOFETIL [Suspect]
     Active Substance: MYCOPHENOLATE MOFETIL
     Indication: Immunosuppression
  17. DEXAMETHASONE [Suspect]
     Active Substance: DEXAMETHASONE
     Indication: Diffuse large B-cell lymphoma
     Dosage: 24 MG
     Route: 065
  18. DEXAMETHASONE [Suspect]
     Active Substance: DEXAMETHASONE
     Dosage: 40 MG
     Route: 065
  19. TISAGENLECLEUCEL [Suspect]
     Active Substance: TISAGENLECLEUCEL
     Indication: Diffuse large B-cell lymphoma
     Dosage: UNK
     Route: 065
  20. FLUDARABINE PHOSPHATE [Suspect]
     Active Substance: FLUDARABINE PHOSPHATE
     Indication: Diffuse large B-cell lymphoma stage IV
     Dosage: 25 MG/M2, QD (ON DAYS -8 TO -4 )
     Route: 065
  21. FLUDARABINE PHOSPHATE [Suspect]
     Active Substance: FLUDARABINE PHOSPHATE
     Indication: Bone marrow conditioning regimen
     Dosage: 25 MG/M2, QD ON DAYS -8 TO -4
     Route: 065
  22. FLUDARABINE PHOSPHATE [Suspect]
     Active Substance: FLUDARABINE PHOSPHATE
     Indication: Diffuse large B-cell lymphoma
     Dosage: UNK
     Route: 065
  23. FLUDARABINE PHOSPHATE [Suspect]
     Active Substance: FLUDARABINE PHOSPHATE
     Dosage: UNK
     Route: 065
  24. FLUDARABINE PHOSPHATE [Suspect]
     Active Substance: FLUDARABINE PHOSPHATE
     Dosage: 25 MG/M2, QD
     Route: 065
  25. FLUDARABINE PHOSPHATE [Suspect]
     Active Substance: FLUDARABINE PHOSPHATE
     Dosage: 25 MG/M2, QD
     Route: 065
  26. RITUXIMAB [Suspect]
     Active Substance: RITUXIMAB
     Indication: Diffuse large B-cell lymphoma stage IV
     Dosage: 375 MG/M2, CYCLIC
     Route: 065
  27. RITUXIMAB [Suspect]
     Active Substance: RITUXIMAB
     Indication: Diffuse large B-cell lymphoma
     Dosage: 375 MG/M2, CYCLIC QCY
     Route: 042
  28. RITUXIMAB [Suspect]
     Active Substance: RITUXIMAB
     Dosage: 375 MG/M2, THREE CYCLES
     Route: 065
  29. RITUXIMAB [Suspect]
     Active Substance: RITUXIMAB
     Dosage: 375 MG/M2, THREE CYCLES
     Route: 065
  30. FLUDARABINE [Suspect]
     Active Substance: FLUDARABINE PHOSPHATE
     Indication: Diffuse large B-cell lymphoma stage IV
     Dosage: 25 MG/M2, QD (25 MILLIGRAM/SQ. METER, QD ON DAYS -8 TO -4)
     Route: 065
  31. FLUDARABINE [Suspect]
     Active Substance: FLUDARABINE PHOSPHATE
     Indication: Diffuse large B-cell lymphoma
  32. FLUDARABINE [Suspect]
     Active Substance: FLUDARABINE PHOSPHATE
     Indication: Bone marrow conditioning regimen
  33. BENDAMUSTINE [Suspect]
     Active Substance: BENDAMUSTINE
     Indication: Diffuse large B-cell lymphoma
     Dosage: 90 MG/M2
     Route: 065
  34. BENDAMUSTINE [Suspect]
     Active Substance: BENDAMUSTINE
     Indication: Diffuse large B-cell lymphoma stage IV
     Dosage: 90 MG/M2, CYCLIC QCY
     Route: 065
  35. BENDAMUSTINE [Suspect]
     Active Substance: BENDAMUSTINE
     Dosage: 90 MG/M2, CYCLIC  THREE CYCLES
     Route: 065
  36. PREDNISOLONE [Suspect]
     Active Substance: PREDNISOLONE
     Indication: Diffuse large B-cell lymphoma
     Dosage: 100 MG
     Route: 065
  37. VINCRISTINE [Suspect]
     Active Substance: VINCRISTINE
     Indication: Diffuse large B-cell lymphoma
     Dosage: 1.4 MG/M2
     Route: 065
  38. CYCLOPHOSPHAMIDE\DOXORUBICIN\PREDNISONE\VINCRISTINE [Suspect]
     Active Substance: CYCLOPHOSPHAMIDE\DOXORUBICIN\PREDNISONE\VINCRISTINE
     Indication: Diffuse large B-cell lymphoma
     Dosage: CYCLOPHOSPHAMIDE 750 MG/M2, DOXORUBICIN 50 MG/M2, VINCRISTINE 1.4 MG /M2, PREDNISOLONE 100 MG
     Route: 065
  39. CISPLATIN\CYTARABINE\DEXAMETHASONE [Suspect]
     Active Substance: CISPLATIN\CYTARABINE\DEXAMETHASONE
     Indication: Diffuse large B-cell lymphoma
     Dosage: DEXAMETHASONE 40 MG/M2,CYTARABINE 2,000 MG CISPLATIN 100 MG/M2
     Route: 065
  40. BEAM [Suspect]
     Active Substance: SODIUM FLUORIDE
     Indication: Diffuse large B-cell lymphoma
     Dosage: BCNU 60 MG/M2, ETOPOSIDE 75MG/M2, CYTARABINE 200 MG/M2, MELPHALAN 20 MG /M2
     Route: 065
  41. BUSULFAN [Suspect]
     Active Substance: BUSULFAN
     Indication: Bone marrow conditioning regimen
     Dosage: 3.2 MG/KG, QD ON DAYS -6 TO -4
     Route: 065
  42. BUSULFAN [Suspect]
     Active Substance: BUSULFAN
     Indication: Diffuse large B-cell lymphoma stage IV
     Dosage: UNK
     Route: 065
  43. POLATUZUMAB VEDOTIN [Suspect]
     Active Substance: POLATUZUMAB VEDOTIN
     Indication: Diffuse large B-cell lymphoma stage IV
     Dosage: 1.8 MG/KG (1.8 MG/KG, QCY)  THREE CYCLES
     Route: 065
  44. POLATUZUMAB VEDOTIN [Suspect]
     Active Substance: POLATUZUMAB VEDOTIN
     Indication: Diffuse large B-cell lymphoma
     Dosage: 1.8 MG/KG, CYCLIC (1.8 MG/KG, QCY)
     Route: 065
  45. POLATUZUMAB VEDOTIN [Suspect]
     Active Substance: POLATUZUMAB VEDOTIN
     Dosage: 1.8 MG/KG, QCY
     Route: 065
  46. POLATUZUMAB VEDOTIN [Suspect]
     Active Substance: POLATUZUMAB VEDOTIN
     Dosage: 1.8 MG/KG, THREE CYCLES
     Route: 065

REACTIONS (4)
  - Acute graft versus host disease in skin [Recovered/Resolved]
  - Cystitis viral [Recovered/Resolved]
  - Cytomegalovirus infection reactivation [Recovered/Resolved]
  - Human polyomavirus infection [Recovered/Resolved]
